FAERS Safety Report 7295002-4 (Version None)
Quarter: 2011Q1

REPORT INFORMATION
  Report Type: 
  Country: None (occurrence: None)
  Receive Date: 20110216
  Receipt Date: 20110208
  Transmission Date: 20110831
  Serious: Yes (Death)
  Sender: FDA-Public Use
  Company Number: JP-BRISTOL-MYERS SQUIBB COMPANY-15456395

PATIENT
  Age: 27 Year
  Sex: Female

DRUGS (12)
  1. ABILIFY [Suspect]
     Indication: HALLUCINATION
     Dosage: 16JAN2010-17JAN2010:6MG/DAY;18JAN-19JAN2010:18MG/DAY(2 DAYS);20JAN-10FEB2010:24MG/DAY/22DAYS
     Route: 048
     Dates: start: 20080116, end: 20100210
  2. SILECE [Concomitant]
     Dosage: 2MG TAB 18JAN2010-3JAN2010,16FEB2010-UNK
     Dates: start: 20100118, end: 20100203
  3. ABILIFY [Suspect]
     Indication: DELUSION
     Dosage: 16JAN2010-17JAN2010:6MG/DAY;18JAN-19JAN2010:18MG/DAY(2 DAYS);20JAN-10FEB2010:24MG/DAY/22DAYS
     Route: 048
     Dates: start: 20080116, end: 20100210
  4. EURODIN [Concomitant]
     Dosage: EURODIN 2MG TAB
     Dates: start: 20100203, end: 20100216
  5. PROMETHAZINE HYDROCHLORIDE [Concomitant]
     Dosage: PYRETHIA 25MG TAB
     Dates: start: 20100213, end: 20100216
  6. RESTAS [Concomitant]
     Dosage: RESTAS TAB 2MG
     Dates: start: 20100203, end: 20100216
  7. AKINETON [Concomitant]
     Dosage: AKINETON TAB 1MG , 3FEB-9FEB2010,10FEB-16FEB2010
     Dates: start: 20100203, end: 20100216
  8. ABILIFY [Suspect]
     Indication: SCHIZOPHRENIA
     Dosage: 16JAN2010-17JAN2010:6MG/DAY;18JAN-19JAN2010:18MG/DAY(2 DAYS);20JAN-10FEB2010:24MG/DAY/22DAYS
     Route: 048
     Dates: start: 20080116, end: 20100210
  9. VEGETAMIN A [Concomitant]
     Dosage: VEGETAMIN A TAB,15FEB2010-16FEB2010.
     Dates: start: 20080215, end: 20100216
  10. RHYTHMY [Concomitant]
     Dosage: RHYTHMY TABS
     Dates: start: 20080120
  11. SERENACE [Concomitant]
     Dosage: ALSO FROM 16-FEB-2010-ONGOING
     Route: 048
     Dates: start: 20100216
  12. TRIHEXYPHENIDYL HCL [Concomitant]
     Indication: PARKINSON'S DISEASE
     Dosage: TRIHEXYPHENIDYL HCL TAB
     Dates: start: 20080210

REACTIONS (1)
  - PULMONARY EMBOLISM [None]
